FAERS Safety Report 5762757-7 (Version None)
Quarter: 2008Q2

REPORT INFORMATION
  Report Type: 
  Country: None (occurrence: None)
  Receive Date: 20080609
  Receipt Date: 20080604
  Transmission Date: 20081010
  Serious: Yes (Other)
  Sender: FDA-Public Use
  Company Number: AT-ASTRAZENECA-2008PK01060

PATIENT
  Age: 65 Year
  Sex: Male

DRUGS (13)
  1. SEROQUEL [Suspect]
     Indication: DEPRESSION
     Dates: start: 20071213, end: 20071218
  2. SEROQUEL [Suspect]
     Dates: start: 20071219, end: 20071224
  3. SEROQUEL [Suspect]
     Dates: start: 20071225, end: 20080106
  4. SEROQUEL [Suspect]
     Route: 048
     Dates: start: 20080107, end: 20080115
  5. SEROQUEL [Suspect]
     Route: 048
     Dates: start: 20080116, end: 20080116
  6. SEROQUEL [Suspect]
     Route: 048
     Dates: start: 20080117, end: 20080117
  7. SEROQUEL [Suspect]
     Route: 048
     Dates: start: 20080118, end: 20080124
  8. VENLAFAXINE HCL [Concomitant]
     Dates: start: 20071210
  9. MARCUMAR [Concomitant]
  10. NOXEMOR [Concomitant]
  11. ACECOMB [Concomitant]
  12. SIMVASTATIN [Concomitant]
  13. PANTOPRAZOLE SODIUM [Concomitant]

REACTIONS (1)
  - OSTEOARTHRITIS [None]
